FAERS Safety Report 5834235-8 (Version None)
Quarter: 2008Q3

REPORT INFORMATION
  Report Type: 
  Country: None (occurrence: None)
  Receive Date: 20080722
  Receipt Date: 20071120
  Transmission Date: 20090109
  Serious: Yes (Hospitalization)
  Sender: FDA-Public Use
  Company Number: 2007BI024653

PATIENT
  Age: 66 Year
  Sex: Female
  Weight: 77.1115 kg

DRUGS (1)
  1. AVONEX [Suspect]
     Indication: MULTIPLE SCLEROSIS
     Dosage: IM
     Route: 030
     Dates: start: 20010301

REACTIONS (3)
  - MULTIPLE SCLEROSIS RELAPSE [None]
  - PYREXIA [None]
  - URINARY TRACT INFECTION [None]
